FAERS Safety Report 21555085 (Version 1)
Quarter: 2022Q4

REPORT INFORMATION
  Report Type: Spontaneous
  Country: US (occurrence: US)
  Receive Date: 20221104
  Receipt Date: 20221104
  Transmission Date: 20230113
  Serious: No
  Sender: FDA-Public Use
  Company Number: US-JNJFOC-20221057870

PATIENT
  Sex: Male

DRUGS (1)
  1. MENS ROGAINE EXTRA STRENGTH [Suspect]
     Active Substance: MINOXIDIL
     Indication: Alopecia
     Dosage: DOSE: LITTLE HANDFUL TWICE A DAY
     Route: 061
     Dates: start: 20221016

REACTIONS (4)
  - Application site vesicles [Not Recovered/Not Resolved]
  - Application site rash [Not Recovered/Not Resolved]
  - Application site erythema [Not Recovered/Not Resolved]
  - Incorrect dose administered [Unknown]

NARRATIVE: CASE EVENT DATE: 20221016
